FAERS Safety Report 6310153-6 (Version None)
Quarter: 2009Q3

REPORT INFORMATION
  Report Type: 
  Country: None (occurrence: None)
  Receive Date: 20090811
  Receipt Date: 20090728
  Transmission Date: 20100115
  Serious: Yes (Hospitalization)
  Sender: FDA-Public Use
  Company Number: KV200800128

PATIENT
  Age: 34 Year
  Sex: Male

DRUGS (5)
  1. MORPHINE SULFATE [Suspect]
     Indication: BACK PAIN
     Dosage: 60 MG, TID, ORAL
     Route: 048
     Dates: start: 20020101, end: 20080101
  2. XANAX [Concomitant]
  3. SOMA [Concomitant]
  4. NEXIUM [Concomitant]
  5. ALBUTEROL /00139501/(SALBUTAMOL) [Concomitant]

REACTIONS (7)
  - CARDIAC ARREST [None]
  - CHEST DISCOMFORT [None]
  - CHEST PAIN [None]
  - FATIGUE [None]
  - HEART RATE DECREASED [None]
  - LETHARGY [None]
  - PRODUCT QUALITY ISSUE [None]
